FAERS Safety Report 9523905 (Version 1)
Quarter: 2013Q1

REPORT INFORMATION
  Report Type: Spontaneous
  Country: US (occurrence: None)
  Receive Date: 20130305
  Receipt Date: 20130305
  Transmission Date: 20140127
  Serious: Yes (Other)
  Sender: FDA-Public Use
  Company Number: 163-21880-11122932

PATIENT
  Age: 63 Year
  Sex: Male

DRUGS (8)
  1. REVLIMID [Suspect]
     Indication: PLASMA CELL MYELOMA
     Dosage: 10 MG, 1 IN 1 D, PO
     Route: 048
     Dates: start: 20111123, end: 20111220
  2. ADDERALL XR (OBETROL) (UNKNOWN) [Concomitant]
  3. PLAVIX (CLOPIDOGREL SULFATE) (UNKNOWN) [Concomitant]
  4. METOPROLOL (METOPROLOL) (UNKNOWN) [Concomitant]
  5. LIPITOR (ATORVASTATIN) (UNKNOWN) [Concomitant]
  6. ZOVIRAX (ACICLOVIR) (UNKNOWN) [Concomitant]
  7. CIALIS (TADALAFIL) (UNKNOWN) [Concomitant]
  8. TESTOSTERONE (TESTOSTERONE) (UNKNOWN) [Concomitant]

REACTIONS (5)
  - Constipation [None]
  - Feeling abnormal [None]
  - Anxiety [None]
  - Dysphonia [None]
  - Fatigue [None]
